FAERS Safety Report 5581545-8 (Version None)
Quarter: 2008Q1

REPORT INFORMATION
  Report Type: 
  Country: None (occurrence: None)
  Receive Date: 20080102
  Receipt Date: 20080102
  Transmission Date: 20080703
  Serious: Yes (Life-Threatening, Hospitalization, Disabling)
  Sender: FDA-Public Use
  Company Number: None

PATIENT
  Sex: Female
  Weight: 113.3993 kg

DRUGS (1)
  1. NUVARING [Suspect]
     Indication: CONTRACEPTION
     Dosage: INSERT RING FOR 3 WEEKS EACH MONTH VAG
     Route: 067
     Dates: start: 20060101, end: 20071212

REACTIONS (1)
  - PULMONARY EMBOLISM [None]
